FAERS Safety Report 9156879 (Version 1)
Quarter: 2013Q1

REPORT INFORMATION
  Report Type: Spontaneous
  Country: DK (occurrence: None)
  Receive Date: 20130206
  Receipt Date: 20130206
  Transmission Date: 20140127
  Serious: Yes (Life-Threatening)
  Sender: FDA-Public Use
  Company Number: 2013MA000912

PATIENT
  Age: 51 Year
  Sex: Female

DRUGS (1)
  1. PACLITAXEL [Suspect]
     Indication: BREAST CANCER STAGE II
     Dosage: 80 MG/SQM; NOS; IV
     Route: 042
     Dates: start: 20130109, end: 20130109

REACTIONS (2)
  - Bronchospasm [None]
  - Tachycardia [None]
